FAERS Safety Report 12602146 (Version 1)
Quarter: 2016Q3

REPORT INFORMATION
  Report Type: Spontaneous
  Country: US (occurrence: US)
  Receive Date: 20160728
  Receipt Date: 20160728
  Transmission Date: 20161109
  Serious: Yes (Other)
  Sender: FDA-Public Use
  Company Number: US-LHC-2016113

PATIENT
  Age: 61 Year
  Sex: Male

DRUGS (1)
  1. NITROUS OXIDE (GENERIC) [Suspect]
     Active Substance: NITROUS OXIDE
     Indication: GENERAL ANAESTHESIA

REACTIONS (1)
  - Pneumocephalus [Recovered/Resolved]
